FAERS Safety Report 6821986-1 (Version None)
Quarter: 2010Q3

REPORT INFORMATION
  Report Type: 
  Country: None (occurrence: None)
  Receive Date: 20100708
  Receipt Date: 20100217
  Transmission Date: 20110219
  Serious: Yes (Other)
  Sender: FDA-Public Use
  Company Number: US-ASTRAZENECA-2009UW20601

PATIENT
  Age: 16230 Day
  Sex: Female

DRUGS (3)
  1. SEROQUEL [Suspect]
     Dosage: 300 TO 1200 MG
     Route: 048
     Dates: start: 20030826
  2. EFFEXOR [Concomitant]
  3. DEPAKOTE ER [Concomitant]
     Dosage: 500 MG TWO IN THE MORNING

REACTIONS (4)
  - DIABETIC NEUROPATHY [None]
  - KETOACIDOSIS [None]
  - PANCREATITIS [None]
  - TYPE 2 DIABETES MELLITUS [None]
